FAERS Safety Report 5329225-8 (Version None)
Quarter: 2007Q2

REPORT INFORMATION
  Report Type: 
  Country: None (occurrence: None)
  Receive Date: 20070518
  Receipt Date: 20070508
  Transmission Date: 20071010
  Serious: Yes (Other)
  Sender: FDA-Public Use
  Company Number: US-PFIZER INC-2007037134

PATIENT
  Sex: Male
  Weight: 81.6 kg

DRUGS (5)
  1. XANAX [Suspect]
     Indication: ANXIETY
     Route: 048
     Dates: start: 20070307, end: 20070301
  2. ACTIQ [Suspect]
     Indication: BACK PAIN
  3. ACTIQ [Suspect]
     Indication: PAIN IN EXTREMITY
  4. HYDROCODONE BITARTRATE [Suspect]
  5. LIPITOR [Concomitant]
     Dates: start: 20060101

REACTIONS (3)
  - GAIT DISTURBANCE [None]
  - RESPIRATORY RATE DECREASED [None]
  - SOMNOLENCE [None]
